FAERS Safety Report 5487618-2 (Version None)
Quarter: 2007Q4

REPORT INFORMATION
  Report Type: 
  Country: None (occurrence: None)
  Receive Date: 20071016
  Receipt Date: 20071009
  Transmission Date: 20080405
  Serious: Yes (Other)
  Sender: FDA-Public Use
  Company Number: US-ELI_LILLY_AND_COMPANY-US200710002364

PATIENT
  Sex: Male

DRUGS (2)
  1. HUMALOG [Suspect]
  2. NOVOLIN N [Concomitant]

REACTIONS (4)
  - BLOOD GLUCOSE DECREASED [None]
  - DIARRHOEA [None]
  - VASCULAR GRAFT [None]
  - WOUND [None]
